FAERS Safety Report 10192870 (Version 1)
Quarter: 2014Q2

REPORT INFORMATION
  Report Type: Spontaneous
  Country: IN (occurrence: IN)
  Receive Date: 20140523
  Receipt Date: 20140523
  Transmission Date: 20141212
  Serious: Yes (Death, Other)
  Sender: FDA-Public Use
  Company Number: IN-PFIZER INC-2014137773

PATIENT
  Age: 27 Year
  Sex: Female

DRUGS (7)
  1. LEVOFLOXACIN [Suspect]
     Dosage: UNK
     Route: 051
  2. PIPERACILLIN/TAZOBACTAM [Suspect]
     Dosage: UNK
     Route: 051
  3. SULFAMETHOXAZOLE/TRIMETHOPRIM [Suspect]
     Dosage: 15 MG/KG, DAILY
  4. TACROLIMUS [Concomitant]
     Dosage: UNK
  5. MYCOPHENOLATE MOFETIL [Concomitant]
     Dosage: 750 MG, 2X/DAY
  6. PREDNISOLON [Concomitant]
     Dosage: 5 MG, DAILY
     Route: 048
  7. SIROLIMUS [Concomitant]
     Dosage: UNK

REACTIONS (10)
  - Multi-organ failure [Fatal]
  - Drug ineffective [Unknown]
  - Blood pressure decreased [None]
  - Pneumocystis jirovecii pneumonia [None]
  - General physical health deterioration [None]
  - Haemodialysis [None]
  - Blood lactate dehydrogenase increased [None]
  - Transplant dysfunction [None]
  - Platelet count decreased [None]
  - Haemoglobin decreased [None]
